FAERS Safety Report 7627730-2 (Version None)
Quarter: 2011Q3

REPORT INFORMATION
  Report Type: 
  Country: None (occurrence: None)
  Receive Date: 20110721
  Receipt Date: 20110711
  Transmission Date: 20111222
  Serious: Yes (Other)
  Sender: FDA-Public Use
  Company Number: PL-TEVA-290677ISR

PATIENT
  Age: 12 Year
  Sex: Female

DRUGS (4)
  1. CLARITHROMYCIN [Interacting]
     Indication: BRONCHITIS
  2. AZATHIOPRINE [Suspect]
     Indication: NEPHROTIC SYNDROME
  3. CYCLOSPORINE [Interacting]
     Indication: NEPHROTIC SYNDROME
  4. PREDNISONE [Suspect]
     Indication: NEPHROTIC SYNDROME

REACTIONS (4)
  - RENAL FAILURE ACUTE [None]
  - RESPIRATORY TRACT INFECTION [None]
  - NEPHROTIC SYNDROME [None]
  - DRUG INTERACTION [None]
